FAERS Safety Report 4329790-3 (Version None)
Quarter: 2004Q1

REPORT INFORMATION
  Report Type: 
  Country: None (occurrence: None)
  Receive Date: 20040329
  Receipt Date: 20040316
  Transmission Date: 20041129
  Serious: Yes (Death)
  Sender: FDA-Public Use
  Company Number: 040319-000315

PATIENT
  Age: 39 Year
  Sex: Female

DRUGS (2)
  1. METHAMPHETAMINE HCL (METHAMPHETAMINE HCL) [Suspect]
     Dosage: UNKNOWN; PO
     Route: 048
  2. METHAMPHETAMINE HCL (METHAMPHETAMINE HCL) [Suspect]
     Dosage: UNKNOWN; IV
     Route: 042

REACTIONS (2)
  - DRUG ABUSER [None]
  - DRUG TOXICITY [None]
